FAERS Safety Report 13815506 (Version 1)
Quarter: 2017Q3

REPORT INFORMATION
  Report Type: Report from Study
  Country: IT (occurrence: IT)
  Receive Date: 20170731
  Receipt Date: 20170731
  Transmission Date: 20171127
  Serious: Yes (Death, Other)
  Sender: FDA-Public Use
  Company Number: IT-GLAXOSMITHKLINE-IT2017GSK116130

PATIENT
  Age: 15 Year
  Sex: Female

DRUGS (5)
  1. LAMOTRIGINE. [Suspect]
     Active Substance: LAMOTRIGINE
     Indication: POSTERIOR REVERSIBLE ENCEPHALOPATHY SYNDROME
  2. TRIMETHOPRIM + SULFAMETHOXAZOL [Suspect]
     Active Substance: SULFAMERAZINE SODIUM\TRIMETHOPRIM
  3. VORICONAZOLE. [Suspect]
     Active Substance: VORICONAZOLE
     Indication: ASPERGILLUS INFECTION
     Dosage: 12 MG/KG, UNK
  4. GANCICLOVIR. [Suspect]
     Active Substance: GANCICLOVIR
  5. PHENOBARBITAL. [Suspect]
     Active Substance: PHENOBARBITAL

REACTIONS (2)
  - Sepsis [Fatal]
  - Toxic epidermal necrolysis [Fatal]
